FAERS Safety Report 11030837 (Version 1)
Quarter: 2015Q2

REPORT INFORMATION
  Report Type: Spontaneous
  Country: US (occurrence: US)
  Receive Date: 20150415
  Receipt Date: 20150415
  Transmission Date: 20150821
  Serious: No
  Sender: FDA-Public Use
  Company Number: US-009507513-1504USA004932

PATIENT
  Weight: 138.78 kg

DRUGS (1)
  1. NEXPLANON [Suspect]
     Active Substance: ETONOGESTREL
     Dosage: 1 ROD, UNK, LEFT ARM
     Route: 059
     Dates: start: 20140529, end: 20150320

REACTIONS (1)
  - Device breakage [Recovered/Resolved]
